FAERS Safety Report 7638226-6 (Version None)
Quarter: 2011Q3

REPORT INFORMATION
  Report Type: 
  Country: None (occurrence: None)
  Receive Date: 20110720
  Receipt Date: 20110712
  Transmission Date: 20111222
  Serious: Yes (Hospitalization)
  Sender: FDA-Public Use
  Company Number: LEO-2011-00585

PATIENT
  Age: 28 Year
  Sex: Female

DRUGS (6)
  1. CIPROFLOXACIN [Suspect]
     Indication: ENTEROCOCCAL INFECTION
     Dosage: (2 IN 1 D), INTRAVENOUS
     Route: 042
     Dates: start: 20110215, end: 20110217
  2. IRON MYLAN (IRON) [Suspect]
     Indication: MICROCYTIC ANAEMIA
     Dosage: 200 MG, INTRAVENOUS
     Route: 042
     Dates: start: 20110216, end: 20110217
  3. CIPROFLOXACIN [Suspect]
     Indication: ENTEROCOCCAL INFECTION
     Dates: start: 20110217, end: 20110219
  4. PIPERACILLIN TAZOBACTAM (PIPERACILLIN SODIUM, TAZOBACTAM SODIUM) [Concomitant]
  5. INNOHEP [Suspect]
     Indication: PULMONARY ALVEOLAR HAEMORRHAGE
     Dosage: 800 IU, SUBCUTANEOUS
     Route: 058
     Dates: start: 20110216, end: 20110217
  6. TRAMADOL HCL [Suspect]
     Indication: PRODUCT USED FOR UNKNOWN INDICATION
     Dosage: 200 MG (100 MG, 2 IN 1 D), ORAL
     Route: 048
     Dates: start: 20110215, end: 20110218

REACTIONS (2)
  - URTICARIA [None]
  - TOXIC SKIN ERUPTION [None]
